FAERS Safety Report 20009134 (Version 1)
Quarter: 2021Q4

REPORT INFORMATION
  Report Type: Spontaneous
  Country: CA (occurrence: CA)
  Receive Date: 20211029
  Receipt Date: 20211029
  Transmission Date: 20220303
  Serious: Yes (Other)
  Sender: FDA-Public Use
  Company Number: CA-AUROBINDO-AUR-APL-2021-044471

PATIENT
  Age: 18 Year
  Sex: Male
  Weight: 86.18 kg

DRUGS (1)
  1. LAMOTRIGINE [Suspect]
     Active Substance: LAMOTRIGINE
     Indication: Seizure
     Dosage: 450 MILLIGRAM, ONCE A DAY
     Route: 065

REACTIONS (1)
  - Change in seizure presentation [Recovered/Resolved]
